FAERS Safety Report 16066701 (Version 3)
Quarter: 2020Q2

REPORT INFORMATION
  Report Type: Report from Study
  Country: FI (occurrence: FI)
  Receive Date: 20190313
  Receipt Date: 20200528
  Transmission Date: 20200713
  Serious: Yes (Hospitalization, Other)
  Sender: FDA-Public Use
  Company Number: FI-MYLANLABS-2019M1017933

PATIENT
  Age: 24 Year
  Sex: Male

DRUGS (6)
  1. ATROVENT [Concomitant]
     Active Substance: IPRATROPIUM BROMIDE
     Indication: SALIVARY HYPERSECRETION
     Dosage: UNK
  2. LEPONEX [Suspect]
     Active Substance: CLOZAPINE
     Indication: PSYCHOTIC DISORDER
     Dosage: 300 MILLIGRAM, QD
     Dates: start: 201901, end: 2019
  3. LEPONEX [Suspect]
     Active Substance: CLOZAPINE
     Dosage: 250 MILLIGRAM, QD
     Dates: start: 2019
  4. LEPONEX [Suspect]
     Active Substance: CLOZAPINE
     Dosage: 100 MILLIGRAM, QD
     Dates: start: 2019, end: 202001
  5. LEPONEX [Suspect]
     Active Substance: CLOZAPINE
     Indication: SCHIZOPHRENIA
     Dosage: UNK
     Dates: start: 20181217, end: 201901
  6. LEPONEX [Suspect]
     Active Substance: CLOZAPINE
     Dosage: INCREASED UP TO 300 MG, QD
     Dates: start: 202004

REACTIONS (9)
  - Schizophrenia [Recovering/Resolving]
  - Blood alkaline phosphatase increased [Recovering/Resolving]
  - Asthenia [Recovering/Resolving]
  - Delirium [Recovering/Resolving]
  - Gamma-glutamyltransferase increased [Recovering/Resolving]
  - Hallucination, auditory [Not Recovered/Not Resolved]
  - Salivary hypersecretion [Unknown]
  - Alanine aminotransferase increased [Recovering/Resolving]
  - Eating disorder [Unknown]

NARRATIVE: CASE EVENT DATE: 2019
